FAERS Safety Report 25646841 (Version 1)
Quarter: 2025Q3

REPORT INFORMATION
  Report Type: Report from Study
  Country: US (occurrence: US)
  Receive Date: 20250805
  Receipt Date: 20250805
  Transmission Date: 20251021
  Serious: Yes (Hospitalization)
  Sender: ABBVIE
  Company Number: US-ABBVIE-6395354

PATIENT
  Age: 71 Year
  Sex: Female

DRUGS (4)
  1. ARMOUR THYROID [Suspect]
     Active Substance: THYROID, PORCINE
     Indication: Hypothyroidism
     Dosage: FORM STRENGTH 180 MILLIGRAM
     Route: 048
     Dates: start: 202503, end: 202504
  2. ARMOUR THYROID [Suspect]
     Active Substance: THYROID, PORCINE
     Indication: Hypothyroidism
     Dosage: FORM STRENGTH 120 MILLIGRAM
     Route: 048
     Dates: start: 202504
  3. ARMOUR THYROID [Suspect]
     Active Substance: THYROID, PORCINE
     Indication: Hypothyroidism
     Route: 048
  4. ARMOUR THYROID [Suspect]
     Active Substance: THYROID, PORCINE
     Indication: Hypothyroidism
     Dosage: FORM STRENGTH 120 MILLIGRAM?START DATE TEXT: MAYBE AT LEAST 5 YEARS
     Route: 048

REACTIONS (7)
  - Illness [Unknown]
  - Wrong technique in product usage process [Unknown]
  - Fall [Unknown]
  - Osteoporosis [Unknown]
  - Shoulder fracture [Unknown]
  - Thyroid hormones decreased [Unknown]
  - Blood test abnormal [Unknown]

NARRATIVE: CASE EVENT DATE: 20250101
